FAERS Safety Report 25013023 (Version 1)
Quarter: 2025Q1

REPORT INFORMATION
  Report Type: Spontaneous
  Country: DE (occurrence: DE)
  Receive Date: 20250226
  Receipt Date: 20250226
  Transmission Date: 20250409
  Serious: Yes (Other)
  Sender: MYLAN
  Company Number: DE-MYLANLABS-2025M1015846

PATIENT
  Age: 55 Year
  Sex: Male

DRUGS (40)
  1. GEMCITABINE [Suspect]
     Active Substance: GEMCITABINE
     Indication: Cholangiocarcinoma
  2. GEMCITABINE [Suspect]
     Active Substance: GEMCITABINE
     Route: 065
  3. GEMCITABINE [Suspect]
     Active Substance: GEMCITABINE
     Route: 065
  4. GEMCITABINE [Suspect]
     Active Substance: GEMCITABINE
  5. CISPLATIN [Suspect]
     Active Substance: CISPLATIN
     Indication: Cholangiocarcinoma
  6. CISPLATIN [Suspect]
     Active Substance: CISPLATIN
     Route: 065
  7. CISPLATIN [Suspect]
     Active Substance: CISPLATIN
     Route: 065
  8. CISPLATIN [Suspect]
     Active Substance: CISPLATIN
  9. PREDNISOLONE [Suspect]
     Active Substance: PREDNISOLONE
     Indication: Hepatitis acute
     Dosage: 60 MILLIGRAM, QD
     Route: 065
     Dates: start: 2023, end: 2023
  10. PREDNISOLONE [Suspect]
     Active Substance: PREDNISOLONE
     Dosage: 60 MILLIGRAM, QD
     Dates: start: 2023, end: 2023
  11. PREDNISOLONE [Suspect]
     Active Substance: PREDNISOLONE
     Dosage: 60 MILLIGRAM, QD
     Dates: start: 2023, end: 2023
  12. PREDNISOLONE [Suspect]
     Active Substance: PREDNISOLONE
     Dosage: 60 MILLIGRAM, QD
     Route: 065
     Dates: start: 2023, end: 2023
  13. PREDNISOLONE [Suspect]
     Active Substance: PREDNISOLONE
     Dosage: 1 MILLIGRAM/KILOGRAM, QD
     Dates: start: 2023, end: 2023
  14. PREDNISOLONE [Suspect]
     Active Substance: PREDNISOLONE
     Dosage: 1 MILLIGRAM/KILOGRAM, QD
     Dates: start: 2023, end: 2023
  15. PREDNISOLONE [Suspect]
     Active Substance: PREDNISOLONE
     Dosage: 1 MILLIGRAM/KILOGRAM, QD
     Route: 065
     Dates: start: 2023, end: 2023
  16. PREDNISOLONE [Suspect]
     Active Substance: PREDNISOLONE
     Dosage: 1 MILLIGRAM/KILOGRAM, QD
     Route: 065
     Dates: start: 2023, end: 2023
  17. PREDNISOLONE [Suspect]
     Active Substance: PREDNISOLONE
     Dosage: 5 MILLIGRAM, QD
     Route: 065
     Dates: start: 2023, end: 2023
  18. PREDNISOLONE [Suspect]
     Active Substance: PREDNISOLONE
     Dosage: 5 MILLIGRAM, QD
     Dates: start: 2023, end: 2023
  19. PREDNISOLONE [Suspect]
     Active Substance: PREDNISOLONE
     Dosage: 5 MILLIGRAM, QD
     Dates: start: 2023, end: 2023
  20. PREDNISOLONE [Suspect]
     Active Substance: PREDNISOLONE
     Dosage: 5 MILLIGRAM, QD
     Route: 065
     Dates: start: 2023, end: 2023
  21. PREDNISOLONE [Suspect]
     Active Substance: PREDNISOLONE
     Dosage: 10 MILLIGRAM, QD
     Dates: start: 202309
  22. PREDNISOLONE [Suspect]
     Active Substance: PREDNISOLONE
     Dosage: 10 MILLIGRAM, QD
     Dates: start: 202309
  23. PREDNISOLONE [Suspect]
     Active Substance: PREDNISOLONE
     Dosage: 10 MILLIGRAM, QD
     Route: 065
     Dates: start: 202309
  24. PREDNISOLONE [Suspect]
     Active Substance: PREDNISOLONE
     Dosage: 10 MILLIGRAM, QD
     Route: 065
     Dates: start: 202309
  25. PREDNISOLONE [Suspect]
     Active Substance: PREDNISOLONE
  26. PREDNISOLONE [Suspect]
     Active Substance: PREDNISOLONE
  27. PREDNISOLONE [Suspect]
     Active Substance: PREDNISOLONE
     Route: 065
  28. PREDNISOLONE [Suspect]
     Active Substance: PREDNISOLONE
     Route: 065
  29. PREDNISOLONE [Suspect]
     Active Substance: PREDNISOLONE
  30. PREDNISOLONE [Suspect]
     Active Substance: PREDNISOLONE
     Route: 065
  31. PREDNISOLONE [Suspect]
     Active Substance: PREDNISOLONE
  32. PREDNISOLONE [Suspect]
     Active Substance: PREDNISOLONE
     Route: 065
  33. CAPECITABINE [Suspect]
     Active Substance: CAPECITABINE
     Indication: Cholangiocarcinoma
  34. CAPECITABINE [Suspect]
     Active Substance: CAPECITABINE
     Route: 065
  35. CAPECITABINE [Suspect]
     Active Substance: CAPECITABINE
     Route: 065
  36. CAPECITABINE [Suspect]
     Active Substance: CAPECITABINE
  37. DURVALUMAB [Suspect]
     Active Substance: DURVALUMAB
     Indication: Cholangiocarcinoma
  38. DURVALUMAB [Suspect]
     Active Substance: DURVALUMAB
     Route: 065
  39. DURVALUMAB [Suspect]
     Active Substance: DURVALUMAB
     Route: 065
  40. DURVALUMAB [Suspect]
     Active Substance: DURVALUMAB

REACTIONS (5)
  - Myelosuppression [Unknown]
  - Rebound effect [Recovered/Resolved]
  - Hepatitis acute [Recovered/Resolved]
  - Drug ineffective [Unknown]
  - Gastrointestinal toxicity [Unknown]

NARRATIVE: CASE EVENT DATE: 20220101
